FAERS Safety Report 10079591 (Version 1)
Quarter: 2014Q2

REPORT INFORMATION
  Report Type: Spontaneous
  Country: US (occurrence: None)
  Receive Date: 20140414
  Receipt Date: 20140414
  Transmission Date: 20141212
  Serious: Yes (Life-Threatening, Disabling, Other)
  Sender: FDA-Public Use
  Company Number: None

PATIENT
  Age: 61 Year
  Sex: Female

DRUGS (1)
  1. PROLIA [Suspect]
     Indication: BONE DISORDER
     Dosage: 1 SHOT
     Dates: start: 20120615

REACTIONS (5)
  - Oral infection [None]
  - Bone loss [None]
  - Tooth extraction [None]
  - Eating disorder [None]
  - Malaise [None]
